FAERS Safety Report 24705211 (Version 1)
Quarter: 2024Q4

REPORT INFORMATION
  Report Type: Spontaneous
  Country: US (occurrence: None)
  Receive Date: 20241205
  Receipt Date: 20241205
  Transmission Date: 20250114
  Serious: No
  Sender: Public
  Company Number: None

PATIENT
  Age: 32 Year
  Sex: Male
  Weight: 74 kg

DRUGS (2)
  1. LIDOCAINE HYDROCHLORIDE [Suspect]
     Active Substance: LIDOCAINE HYDROCHLORIDE
     Indication: Anaesthesia
     Dosage: OTHER FREQUENCY : ONCE;?
     Route: 042
     Dates: start: 20210616, end: 20210616
  2. BUPIVACAINE HYDROCHLORIDE [Suspect]
     Active Substance: BUPIVACAINE HYDROCHLORIDE
     Dosage: OTHER FREQUENCY : ONCE;?
     Route: 042
     Dates: start: 20210616, end: 20210616

REACTIONS (7)
  - Dizziness [None]
  - Vomiting [None]
  - Nausea [None]
  - Hyperhidrosis [None]
  - Chills [None]
  - Flushing [None]
  - Anosmia [None]

NARRATIVE: CASE EVENT DATE: 20210616
